FAERS Safety Report 7783544-4 (Version None)
Quarter: 2011Q3

REPORT INFORMATION
  Report Type: 
  Country: None (occurrence: None)
  Receive Date: 20110928
  Receipt Date: 20110928
  Transmission Date: 20111222
  Serious: Yes (Hospitalization)
  Sender: FDA-Public Use
  Company Number: None

PATIENT
  Age: 42 Year
  Sex: Female
  Weight: 80.739 kg

DRUGS (1)
  1. LAMOTRIGINE [Suspect]
     Indication: MOOD ALTERED
     Dosage: 50MG
     Route: 048
     Dates: start: 20110924, end: 20110925

REACTIONS (1)
  - STEVENS-JOHNSON SYNDROME [None]
